FAERS Safety Report 18469795 (Version 5)
Quarter: 2021Q4

REPORT INFORMATION
  Report Type: Spontaneous
  Country: US (occurrence: US)
  Receive Date: 20201105
  Receipt Date: 20211013
  Transmission Date: 20220304
  Serious: No
  Sender: FDA-Public Use
  Company Number: US-PFIZER INC-2020428415

PATIENT
  Age: 80 Year
  Sex: Female

DRUGS (1)
  1. LYRICA [Suspect]
     Active Substance: PREGABALIN
     Indication: Diabetic neuropathy
     Dosage: 150 MG, 2X/DAY (TAKE 1 CAPSULE (150 MG) BY MOUTH 2 TIMES DAILY)
     Route: 048
     Dates: start: 20210422

REACTIONS (2)
  - Nerve injury [Unknown]
  - Dysphonia [Unknown]
